FAERS Safety Report 23730302 (Version 2)
Quarter: 2024Q2

REPORT INFORMATION
  Report Type: Spontaneous
  Country: US (occurrence: US)
  Receive Date: 20240411
  Receipt Date: 20240510
  Transmission Date: 20240716
  Serious: No
  Sender: FDA-Public Use
  Company Number: US-AMGEN-USASP2024071914

PATIENT
  Age: 18 Year
  Sex: Female

DRUGS (19)
  1. AIMOVIG [Suspect]
     Active Substance: ERENUMAB-AOOE
     Indication: Migraine
     Dosage: 140 MILLIGRAM, QMO
     Route: 058
  2. AIMOVIG [Suspect]
     Active Substance: ERENUMAB-AOOE
     Dosage: 140 MILLIGRAM, QMO
     Route: 058
  3. NAPROXEN [Concomitant]
     Active Substance: NAPROXEN
     Indication: Headache
     Dosage: 500 MILLIGRAM
  4. NAPROXEN [Concomitant]
     Active Substance: NAPROXEN
     Dosage: 500 MILLIGRAM
     Route: 058
  5. BUPROPION [Concomitant]
     Active Substance: BUPROPION
     Dosage: 150 MILLIGRAM, QD
  6. BUPROPION [Concomitant]
     Active Substance: BUPROPION
     Indication: Depression
     Dosage: 150 MILLIGRAM
     Route: 058
  7. BUPROPION [Concomitant]
     Active Substance: BUPROPION
     Indication: Product used for unknown indication
     Dosage: 150 MILLIGRAM
     Route: 058
  8. MONTELUKAST [Concomitant]
     Active Substance: MONTELUKAST SODIUM
     Indication: Seasonal allergy
     Dosage: 10 MILLIGRAM
  9. MONTELUKAST [Concomitant]
     Active Substance: MONTELUKAST SODIUM
     Indication: Product used for unknown indication
     Dosage: 10 MILLIGRAM
     Route: 058
  10. OMEPRAZOLE [Concomitant]
     Active Substance: DONEPEZIL HYDROCHLORIDE\OMEPRAZOLE\OMEPRAZOLE MAGNESIUM
     Indication: Dyspepsia
     Dosage: 40 MILLIGRAM, QD
  11. OMEPRAZOLE [Concomitant]
     Active Substance: DONEPEZIL HYDROCHLORIDE\OMEPRAZOLE\OMEPRAZOLE MAGNESIUM
     Indication: Product used for unknown indication
     Dosage: 40 MILLIGRAM
     Route: 058
  12. FLUOXETINE [Concomitant]
     Active Substance: FLUOXETINE HYDROCHLORIDE
     Indication: Depression
     Dosage: 20 MG DAILY IN THE MORNING, 40 MG AT NIGHT
  13. FLUOXETINE [Concomitant]
     Active Substance: FLUOXETINE HYDROCHLORIDE
     Indication: Product used for unknown indication
     Dosage: 20 MILLIGRAM
     Route: 058
  14. IMITREX [Concomitant]
     Active Substance: SUMATRIPTAN SUCCINATE
     Indication: Product used for unknown indication
     Dosage: 100 MILLIGRAM
  15. IMITREX [Concomitant]
     Active Substance: SUMATRIPTAN SUCCINATE
     Route: 058
  16. LORATADINE [Concomitant]
     Active Substance: LORATADINE
     Indication: Product used for unknown indication
     Dosage: 10 MILLIGRAM (1 IN THE AM, 1 IN THE PM )
  17. LORATADINE [Concomitant]
     Active Substance: LORATADINE
     Dosage: 10 MILLIGRAM
     Route: 058
  18. HAILEY 24 FE [Concomitant]
     Active Substance: ETHINYL ESTRADIOL\NORETHINDRONE ACETATE
     Indication: Oral contraception
     Dosage: 1/20 MG/MCG DAILY
  19. MIRALAX [Concomitant]
     Active Substance: POLYETHYLENE GLYCOL 3350
     Indication: Constipation
     Dosage: UNK

REACTIONS (6)
  - Device difficult to use [Unknown]
  - Accidental exposure to product [Unknown]
  - Wrong technique in product usage process [Unknown]
  - Drug dose omission by device [Unknown]
  - Off label use [Unknown]
  - Migraine [Unknown]

NARRATIVE: CASE EVENT DATE: 20240408
